FAERS Safety Report 4386649-3 (Version None)
Quarter: 2004Q2

REPORT INFORMATION
  Report Type: 
  Country: None (occurrence: None)
  Receive Date: 20040623
  Receipt Date: 20040609
  Transmission Date: 20050107
  Serious: Yes (Other)
  Sender: FDA-Public Use
  Company Number: USA-2003-0008943

PATIENT
  Age: 38 Year
  Sex: Male
  Weight: 93 kg

DRUGS (10)
  1. OXYCONTIN [Suspect]
     Indication: PAIN
     Dosage: 20 MG, SEE TEXT, ORAL
     Route: 048
     Dates: start: 20010301
  2. ELAVIL [Concomitant]
  3. AMBIEN [Concomitant]
  4. NEURONTIN [Concomitant]
  5. VIOXX [Concomitant]
  6. DILAUDID [Concomitant]
  7. LORTAB [Concomitant]
  8. NORCO [Concomitant]
  9. ZOLOFT [Concomitant]
  10. ARTHROTEC [Concomitant]

REACTIONS (16)
  - ANXIETY [None]
  - ARACHNOID CYST [None]
  - CHOLECYSTITIS [None]
  - DEPRESSION [None]
  - DRUG ABUSER [None]
  - DRUG DEPENDENCE [None]
  - DRUG TOLERANCE [None]
  - EJECTION FRACTION DECREASED [None]
  - HEADACHE [None]
  - INGUINAL HERNIA [None]
  - INSOMNIA [None]
  - MANIA [None]
  - NAUSEA [None]
  - PAIN EXACERBATED [None]
  - PSEUDARTHROSIS [None]
  - PSEUDOMENINGOCELE [None]
